FAERS Safety Report 5262159-6 (Version None)
Quarter: 2007Q1

REPORT INFORMATION
  Report Type: 
  Country: None (occurrence: None)
  Receive Date: 20070308
  Receipt Date: 20070220
  Transmission Date: 20070707
  Serious: Yes (Other)
  Sender: FDA-Public Use
  Company Number: ACO_0322_2007

PATIENT

DRUGS (1)
  1. SIRDALUD [Suspect]
     Dosage: DF, UNK; PO
     Route: 048

REACTIONS (1)
  - ANAPHYLACTIC SHOCK [None]
